FAERS Safety Report 9738409 (Version 1)
Quarter: 2013Q4

REPORT INFORMATION
  Report Type: Report from Study
  Country: GB (occurrence: GB)
  Receive Date: 20131208
  Receipt Date: 20131208
  Transmission Date: 20140711
  Serious: Yes (Hospitalization)
  Sender: FDA-Public Use
  Company Number: GB-ROCHE-1313416

PATIENT
  Sex: Female
  Weight: 66 kg

DRUGS (10)
  1. RITUXIMAB [Suspect]
     Indication: RHEUMATOID ARTHRITIS
     Route: 065
     Dates: start: 20130715
  2. ADCAL-D3 [Concomitant]
     Route: 065
  3. AMITRIPTYLINE [Concomitant]
     Route: 048
  4. CITALOPRAM [Concomitant]
     Route: 065
  5. FERROUS FUMARATE [Concomitant]
     Route: 065
  6. LANSOPRAZOLE [Concomitant]
     Route: 049
  7. LORATADINE [Concomitant]
     Route: 048
  8. PREDNISOLONE [Concomitant]
     Route: 048
  9. SIMVASTATIN [Concomitant]
     Route: 048
  10. ZOPICLONE [Concomitant]
     Route: 048

REACTIONS (3)
  - Vomiting [Unknown]
  - Musculoskeletal pain [Unknown]
  - Chest pain [Unknown]
